FAERS Safety Report 16145372 (Version 1)
Quarter: 2019Q2

REPORT INFORMATION
  Report Type: Spontaneous
  Country: US (occurrence: US)
  Receive Date: 20190402
  Receipt Date: 20190402
  Transmission Date: 20190711
  Serious: Yes (Other)
  Sender: FDA-Public Use
  Company Number: US-AUROBINDO-AUR-APU-2018-036172

PATIENT
  Sex: Female

DRUGS (1)
  1. SERTRALINE HYDROCHLORIDE TABLETS 25MG [Suspect]
     Active Substance: SERTRALINE HYDROCHLORIDE
     Indication: PRODUCT USED FOR UNKNOWN INDICATION
     Dosage: UNK
     Route: 065
     Dates: start: 20180613

REACTIONS (6)
  - Dysphagia [Unknown]
  - Pharyngeal swelling [Unknown]
  - Dyspnoea [Unknown]
  - Anaphylactic reaction [Unknown]
  - Hypersensitivity [Unknown]
  - Rash generalised [Unknown]
